FAERS Safety Report 17771793 (Version 5)
Quarter: 2021Q2

REPORT INFORMATION
  Report Type: Spontaneous
  Country: US (occurrence: US)
  Receive Date: 20200512
  Receipt Date: 20210622
  Transmission Date: 20210716
  Serious: Yes (Disabling, Other)
  Sender: FDA-Public Use
  Company Number: US-GILEAD-2020-0465713

PATIENT
  Age: 54 Year
  Sex: Male
  Weight: 122.45 kg

DRUGS (23)
  1. ACETAMINOPHEN. [Concomitant]
     Active Substance: ACETAMINOPHEN
  2. FLEET LAXATIVE [Concomitant]
  3. TIVICAY [Concomitant]
     Active Substance: DOLUTEGRAVIR SODIUM
  4. ATRIPLA [Suspect]
     Active Substance: EFAVIRENZ\EMTRICITABINE\TENOFOVIR DISOPROXIL FUMARATE
     Indication: HIV INFECTION
     Dosage: UNK
     Route: 048
     Dates: start: 201206, end: 201509
  5. DESCOVY [Concomitant]
     Active Substance: EMTRICITABINE\TENOFOVIR ALAFENAMIDE FUMARATE
  6. FLOMAX [Concomitant]
     Active Substance: TAMSULOSIN HYDROCHLORIDE
  7. TRAMADOL. [Concomitant]
     Active Substance: TRAMADOL
  8. ESOMEPRAZOLE. [Concomitant]
     Active Substance: ESOMEPRAZOLE MAGNESIUM
  9. HEPARIN [Concomitant]
     Active Substance: HEPARIN SODIUM
  10. LASIX [Concomitant]
     Active Substance: FUROSEMIDE
  11. AMLODIPINE [Concomitant]
     Active Substance: AMLODIPINE BESYLATE
  12. POTASSIUM [Concomitant]
     Active Substance: POTASSIUM
  13. ENDOCET [Concomitant]
     Active Substance: ACETAMINOPHEN\OXYCODONE HYDROCHLORIDE
  14. AMOX [AMOXICILLIN] [Concomitant]
     Active Substance: AMOXICILLIN
  15. VIREAD [Suspect]
     Active Substance: TENOFOVIR DISOPROXIL FUMARATE
     Indication: HIV INFECTION
     Dosage: UNK
     Route: 048
     Dates: start: 201412, end: 201502
  16. BUMEX [Concomitant]
     Active Substance: BUMETANIDE
  17. ONDANSETRON [Concomitant]
     Active Substance: ONDANSETRON
  18. ATRIPLA [Suspect]
     Active Substance: EFAVIRENZ\EMTRICITABINE\TENOFOVIR DISOPROXIL FUMARATE
     Dosage: UNK
     Route: 048
     Dates: start: 20120909, end: 20140620
  19. TRUVADA [Suspect]
     Active Substance: EMTRICITABINE\TENOFOVIR DISOPROXIL FUMARATE
     Dosage: UNK
     Route: 048
     Dates: start: 2012, end: 2015
  20. TRUVADA [Suspect]
     Active Substance: EMTRICITABINE\TENOFOVIR DISOPROXIL FUMARATE
     Indication: HIV INFECTION
     Dosage: UNK
     Route: 048
     Dates: start: 201412, end: 201502
  21. TRUVADA [Suspect]
     Active Substance: EMTRICITABINE\TENOFOVIR DISOPROXIL FUMARATE
     Dosage: UNK
     Route: 048
     Dates: start: 20140721, end: 20150511
  22. TRUVADA [Suspect]
     Active Substance: EMTRICITABINE\TENOFOVIR DISOPROXIL FUMARATE
     Dosage: UNK
     Route: 048
     Dates: start: 20140918, end: 20150317
  23. AVINZA [Concomitant]
     Active Substance: MORPHINE SULFATE

REACTIONS (16)
  - Chronic kidney disease [Unknown]
  - Osteoporosis [Recovered/Resolved]
  - Multiple fractures [Not Recovered/Not Resolved]
  - Tooth loss [Not Recovered/Not Resolved]
  - Renal neoplasm [Unknown]
  - Renal failure [Unknown]
  - Leg amputation [Recovered/Resolved]
  - Anxiety [Unknown]
  - Blood creatinine increased [Recovered/Resolved]
  - Anhedonia [Unknown]
  - Bone density decreased [Unknown]
  - Renal impairment [Recovered/Resolved]
  - Bone loss [Not Recovered/Not Resolved]
  - Emotional distress [Unknown]
  - Osteonecrosis [Unknown]
  - Pain [Unknown]

NARRATIVE: CASE EVENT DATE: 201403
